FAERS Safety Report 9252442 (Version 1)
Quarter: 2013Q2

REPORT INFORMATION
  Report Type: Report from Study
  Country: JP (occurrence: JP)
  Receive Date: 20130424
  Receipt Date: 20130424
  Transmission Date: 20140414
  Serious: Yes (Hospitalization, Other)
  Sender: FDA-Public Use
  Company Number: JP-ROCHE-750736

PATIENT
  Age: 61 Year
  Sex: Female
  Weight: 57 kg

DRUGS (19)
  1. CELECOXIB [Suspect]
     Indication: RHEUMATOID ARTHRITIS
     Dosage: BEGINNING OF DOSAGE DAY: BEFORE TRIAL
     Route: 048
  2. CELECOXIB [Suspect]
     Route: 048
  3. DICLOFENAC SODIUM [Suspect]
     Indication: RHEUMATOID ARTHRITIS
     Dosage: BEGINNING OF DOSAGE DAY: BEFORE TRIAL
     Route: 054
  4. PREDNISONE [Suspect]
     Indication: RHEUMATOID ARTHRITIS
     Route: 048
     Dates: end: 20101226
  5. GASTER D [Concomitant]
     Indication: GASTRITIS PROPHYLAXIS
     Route: 048
  6. GASTER D [Concomitant]
     Route: 048
  7. ISCOTIN [Concomitant]
     Indication: ANTIBIOTIC PROPHYLAXIS
     Dosage: BEGINNING OF DOSAGE DAY: BEFORE TRIAL
     Route: 048
  8. ISCOTIN [Concomitant]
     Dosage: BEGINNING OF DOSAGE DAY: BEFORE TRIAL
     Route: 048
  9. AMLODIN [Concomitant]
     Indication: HYPERTENSION
     Dosage: DRUG : AMLODIN OD, BEGINNING OF DOSAGE DAY: BEFORE TRIAL
     Route: 048
  10. AMLODIN [Concomitant]
     Route: 048
  11. FLURBIPROFEN [Concomitant]
     Indication: RHEUMATOID ARTHRITIS
     Dosage: DOSE FORM: TAPE;DRUG : ADOFEED, BEGINNING OF DOSAGE DAY: BEFORE TRIAL
     Route: 061
  12. MOHRUS [Concomitant]
     Indication: RHEUMATOID ARTHRITIS
     Dosage: DOSE FORM: TAPE, BEGINNING OF DOSAGE DAY: BEFORE TRIAL
     Route: 061
  13. ALESION [Concomitant]
     Indication: RHINITIS ALLERGIC
     Route: 048
     Dates: start: 20101118, end: 20101226
  14. NAPAGELN [Concomitant]
     Indication: RHEUMATOID ARTHRITIS
     Dosage: BEGINNING OF DOSAGE DAY: BEFORE TRIAL
     Route: 061
  15. FLUTICASONE [Concomitant]
     Indication: RHINITIS ALLERGIC
     Dosage: FORM: NASAL DROP, ROUTE: NASAL26
     Route: 050
     Dates: start: 20101118, end: 20101226
  16. BONALON [Concomitant]
     Indication: OSTEOPOROSIS
     Dosage: BEGINNING OF DOSAGE DAY: BEFORE TRIAL
     Route: 048
  17. BONALON [Concomitant]
     Route: 048
  18. TOCILIZUMAB [Suspect]
     Indication: RHEUMATOID ARTHRITIS
     Route: 042
     Dates: start: 20101021, end: 20101216
  19. TOCILIZUMAB [Suspect]
     Indication: RHEUMATOID ARTHRITIS
     Route: 058
     Dates: start: 20101021, end: 20101216

REACTIONS (7)
  - Melaena [Recovered/Resolved]
  - Large intestine perforation [Recovering/Resolving]
  - Eczema asteatotic [Recovered/Resolved]
  - Blood albumin decreased [Recovered/Resolved]
  - Alanine aminotransferase increased [Recovered/Resolved]
  - Aspartate aminotransferase increased [Recovered/Resolved]
  - Constipation [Recovered/Resolved]
